FAERS Safety Report 21230447 (Version 2)
Quarter: 2022Q3

REPORT INFORMATION
  Report Type: Spontaneous
  Country: IT (occurrence: IT)
  Receive Date: 20220818
  Receipt Date: 20220902
  Transmission Date: 20221027
  Serious: Yes (Life-Threatening, Hospitalization)
  Sender: FDA-Public Use
  Company Number: IT-TEVA-2022-IT-2064435

PATIENT
  Sex: Female

DRUGS (2)
  1. AMIODARONE [Suspect]
     Active Substance: AMIODARONE
     Indication: Ventricular tachycardia
     Route: 042
  2. ADENOSINE [Suspect]
     Active Substance: ADENOSINE
     Indication: Ventricular tachycardia
     Route: 042

REACTIONS (1)
  - Drug ineffective [Unknown]
